FAERS Safety Report 4353693-1 (Version None)
Quarter: 2004Q2

REPORT INFORMATION
  Report Type: 
  Country: None (occurrence: None)
  Receive Date: 20040430
  Receipt Date: 20040415
  Transmission Date: 20050107
  Serious: Yes (Other)
  Sender: FDA-Public Use
  Company Number: T04-USA-01599-01

PATIENT
  Age: 65 Year
  Sex: Male

DRUGS (1)
  1. MEMANTINE (OPEN LABEL) (MEMANTINE) [Suspect]
     Indication: DEMENTIA ALZHEIMER'S TYPE

REACTIONS (1)
  - DIABETES MELLITUS NON-INSULIN-DEPENDENT [None]
